FAERS Safety Report 8773777 (Version 1)
Quarter: 2012Q4

REPORT INFORMATION
  Report Type: 
  Country: US (occurrence: US)
  Receive Date: 20120907
  Receipt Date: 20120907
  Transmission Date: 20130627
  Serious: Yes (Death)
  Sender: FDA-Public Use
  Company Number: US-BAYER-2012-091247

PATIENT
  Age: 30 Year
  Sex: Female
  Weight: 158.73 kg

DRUGS (16)
  1. YAZ [Suspect]
  2. YASMIN [Suspect]
  3. Z-PAK [Concomitant]
     Indication: BRONCHITIS
     Dosage: 500 mg, UNK, once
     Route: 048
     Dates: start: 20070901
  4. Z-PAK [Concomitant]
     Indication: BRONCHITIS
     Dosage: 250 mg, UNK, 4 days
     Route: 048
     Dates: start: 20070901
  5. CEPACOL [Concomitant]
     Indication: OROPHARYNGEAL PAIN
     Dosage: UNK
     Dates: start: 20070901
  6. MOTRIN [Concomitant]
     Indication: OROPHARYNGEAL PAIN
     Dosage: 600 mg, UNK
     Dates: start: 20070901
  7. CHLORASEPTIC [Concomitant]
     Indication: OROPHARYNGEAL PAIN
     Dosage: UNK
     Dates: start: 20070901
  8. HYDROCHLOROTHIAZIDE [Concomitant]
     Dosage: 25 mg, UNK, daily
     Dates: start: 20071017
  9. LISINOPRIL [Concomitant]
     Dosage: 20 mg, UNK, daily
     Dates: start: 20071017
  10. METOPROLOL [Concomitant]
     Dosage: 50 mg, BID
     Dates: start: 20071017, end: 20071113
  11. TESSALON PERLES [Concomitant]
     Dosage: 200 mg, UNK,PRN
     Route: 048
     Dates: start: 20071113
  12. CRANTEX LA [Concomitant]
     Dosage: 1 UNK, UNK,1 ,PRN
     Route: 048
     Dates: start: 20071113
  13. IBUPROFEN [Concomitant]
     Dosage: 800 mg, UNK,[every] 8 [hours] [times] 3 days
     Dates: start: 20071113
  14. IBUPROFEN [Concomitant]
     Dosage: UNK, PRN, [every] 8 [hours]
     Route: 048
     Dates: start: 20071113
  15. LEVAQUIN [Concomitant]
     Dosage: 750 mg, UNK, every] day [times] 4 days
     Route: 048
     Dates: start: 20071113
  16. TESTOSTERONE [Concomitant]
     Dosage: 200 mg, UNK
     Route: 030

REACTIONS (1)
  - Pulmonary embolism [Fatal]
